FAERS Safety Report 9434962 (Version 1)
Quarter: 2013Q3

REPORT INFORMATION
  Report Type: Spontaneous
  Country: US (occurrence: US)
  Receive Date: 20130801
  Receipt Date: 20130801
  Transmission Date: 20140515
  Serious: Yes (Other)
  Sender: FDA-Public Use
  Company Number: US-PFIZER INC-2013224107

PATIENT
  Age: 60 Year
  Sex: Female
  Weight: 67.12 kg

DRUGS (8)
  1. ZOLOFT [Suspect]
     Indication: DEPRESSION
     Dosage: 50 MG DAILY
     Dates: end: 201305
  2. ZOLOFT [Suspect]
     Indication: ANXIETY
  3. WELLBUTRIN [Suspect]
     Indication: DEPRESSION
     Dosage: 150 MG DAILY
     Dates: end: 201305
  4. WELLBUTRIN [Suspect]
     Indication: ANXIETY
  5. VENLAFAXINE [Suspect]
     Indication: DEPRESSION
     Dosage: 75 MG, 2X/DAY
     Dates: start: 201305
  6. VENLAFAXINE [Suspect]
     Indication: ANXIETY
  7. ASPRIN [Concomitant]
     Dosage: 81 MG DAILY
  8. PRAVASTATIN [Concomitant]
     Indication: BLOOD CHOLESTEROL INCREASED
     Dosage: 40 MG DAILY

REACTIONS (7)
  - Myocardial infarction [Unknown]
  - Loss of consciousness [Unknown]
  - Dizziness [Unknown]
  - Weight decreased [Unknown]
  - Chest pain [Unknown]
  - Hypoaesthesia [Unknown]
  - Drug ineffective [Unknown]
